FAERS Safety Report 9835027 (Version 1)
Quarter: 2014Q1

REPORT INFORMATION
  Report Type: Spontaneous
  Country: US (occurrence: US)
  Receive Date: 20140122
  Receipt Date: 20140122
  Transmission Date: 20141002
  Serious: No
  Sender: FDA-Public Use
  Company Number: US-ACORDA-ACO_36985_2013

PATIENT
  Sex: Female

DRUGS (9)
  1. ZANAFLEX TABLETS [Suspect]
     Indication: PROPHYLAXIS
     Dosage: UNK,UNK
     Route: 065
  2. IMITREX [Concomitant]
     Indication: MIGRAINE
     Dosage: UNK,UNK
     Route: 065
  3. ZOMIG [Concomitant]
     Indication: MIGRAINE
     Dosage: UNK,UNK
     Route: 065
  4. MAXALT [Concomitant]
     Indication: MIGRAINE
     Dosage: UNK,UNK
     Route: 065
  5. FROVA [Concomitant]
     Indication: MIGRAINE
     Dosage: UNK,UNK
     Route: 065
  6. TOPAMAX [Concomitant]
     Indication: PROPHYLAXIS
     Dosage: UNK,UNK
     Route: 065
  7. DEPAKOTE [Concomitant]
     Indication: PROPHYLAXIS
     Dosage: UNK,UNK
     Route: 065
  8. ELAVIL [Concomitant]
     Indication: PROPHYLAXIS
     Dosage: UNK,UNK
     Route: 065
  9. RELPAX [Concomitant]
     Indication: PROPHYLAXIS
     Dosage: UNK,UNK
     Route: 065

REACTIONS (1)
  - Drug ineffective for unapproved indication [None]
